FAERS Safety Report 10785312 (Version 2)
Quarter: 2015Q2

REPORT INFORMATION
  Report Type: Spontaneous
  Country: US (occurrence: US)
  Receive Date: 20150211
  Receipt Date: 20150618
  Transmission Date: 20150821
  Serious: Yes (Hospitalization, Disabling, Other)
  Sender: FDA-Public Use
  Company Number: US-009507513-1106USA01817

PATIENT
  Sex: Female

DRUGS (4)
  1. ALENDRONATE SODIUM. [Suspect]
     Active Substance: ALENDRONATE SODIUM
     Indication: BONE DENSITY DECREASED
     Dosage: 70 MG, UNK
     Route: 048
     Dates: start: 20100423
  2. FOSAMAX [Suspect]
     Active Substance: ALENDRONATE SODIUM
     Indication: BONE DENSITY DECREASED
     Dosage: 70 MG, QD
     Route: 048
     Dates: start: 20060804, end: 20070919
  3. FOSAMAX PLUS D [Suspect]
     Active Substance: ALENDRONATE SODIUM\CHOLECALCIFEROL
     Indication: BONE DENSITY DECREASED
     Dosage: 70-5600
     Route: 048
     Dates: start: 20071117, end: 20091202
  4. FOSAMAX PLUS D [Suspect]
     Active Substance: ALENDRONATE SODIUM\CHOLECALCIFEROL
     Dosage: 70 -2800
     Route: 048
     Dates: start: 20081201

REACTIONS (20)
  - Dyslipidaemia [Unknown]
  - Bone disorder [Not Recovered/Not Resolved]
  - Ulna fracture [Unknown]
  - Vertebroplasty [Unknown]
  - Humerus fracture [Unknown]
  - Packed red blood cell transfusion [Unknown]
  - Oedema peripheral [Not Recovered/Not Resolved]
  - Femur fracture [Not Recovered/Not Resolved]
  - Bone disorder [Unknown]
  - Hypertension [Unknown]
  - Atelectasis [Unknown]
  - Hypokalaemia [Unknown]
  - Osteopenia [Unknown]
  - Vitamin D deficiency [Unknown]
  - Osteoarthritis [Unknown]
  - Open reduction of fracture [Unknown]
  - Haematocrit decreased [Unknown]
  - Compression fracture [Unknown]
  - Bursitis [Unknown]
  - Periarthritis [Unknown]

NARRATIVE: CASE EVENT DATE: 2010
